FAERS Safety Report 8805993 (Version 1)
Quarter: 2012Q4

REPORT INFORMATION
  Report Type: Spontaneous
  Country: US (occurrence: None)
  Receive Date: 20120919
  Receipt Date: 20120919
  Transmission Date: 20130627
  Serious: No
  Sender: FDA-Public Use
  Company Number: None

PATIENT
  Age: 36 Year
  Sex: Female
  Weight: 72.58 kg

DRUGS (4)
  1. SALON PAS [Suspect]
     Indication: BURN
     Dosage: first two weeks of Septem
  2. SALON PAS [Suspect]
     Indication: APPLICATION SITE ITCHING
     Dosage: first two weeks of Septem
  3. CORTIZONE [Concomitant]
  4. BENADRYL [Concomitant]

REACTIONS (3)
  - Application site rash [None]
  - Application site burn [None]
  - Application site pruritus [None]
